FAERS Safety Report 19086431 (Version 1)
Quarter: 2021Q2

REPORT INFORMATION
  Report Type: Spontaneous
  Country: US (occurrence: US)
  Receive Date: 20210401
  Receipt Date: 20210401
  Transmission Date: 20210717
  Serious: Yes (Hospitalization)
  Sender: FDA-Public Use
  Company Number: None

PATIENT
  Age: 60 Year
  Sex: Female
  Weight: 65.25 kg

DRUGS (9)
  1. FLORASTER [Concomitant]
  2. BUTALBITOL [Concomitant]
  3. DIFICID [Concomitant]
     Active Substance: FIDAXOMICIN
  4. OXYCONTIN [Concomitant]
     Active Substance: OXYCODONE HYDROCHLORIDE
  5. IBUPROPHIN [Concomitant]
  6. FLORINEF ACETATE [Concomitant]
     Active Substance: FLUDROCORTISONE ACETATE
  7. EUTHYROX [Suspect]
     Active Substance: LEVOTHYROXINE SODIUM
     Indication: HYPOTHYROIDISM
     Dosage: ?          QUANTITY:1 TABLET(S);?
     Route: 048
  8. DICYCLOMINE [Concomitant]
     Active Substance: DICYCLOMINE HYDROCHLORIDE
  9. PREDNISONE. [Concomitant]
     Active Substance: PREDNISONE

REACTIONS (9)
  - Cardiac disorder [None]
  - Headache [None]
  - Feeling abnormal [None]
  - Gastric disorder [None]
  - Drug ineffective [None]
  - Lethargy [None]
  - Product substitution issue [None]
  - Recalled product administered [None]
  - Dizziness [None]

NARRATIVE: CASE EVENT DATE: 20201029
